FAERS Safety Report 9381605 (Version 1)
Quarter: 2013Q3

REPORT INFORMATION
  Report Type: Spontaneous
  Country: DE (occurrence: DE)
  Receive Date: 20130703
  Receipt Date: 20130703
  Transmission Date: 20140515
  Serious: Yes (Other)
  Sender: FDA-Public Use
  Company Number: DE-JNJFOC-20130612059

PATIENT
  Age: 61 Year
  Sex: Female

DRUGS (6)
  1. REMICADE [Suspect]
     Indication: CROHN^S DISEASE
     Route: 042
  2. CIPRALEX [Suspect]
     Indication: DEPRESSION
     Route: 065
  3. CYMBALTA [Suspect]
     Indication: DEPRESSION
     Route: 065
  4. AMINEURIN [Suspect]
     Indication: DEPRESSION
     Route: 065
  5. MIRTAZAPIN [Suspect]
     Indication: DEPRESSION
     Route: 065
  6. CORTISON [Concomitant]
     Route: 065

REACTIONS (5)
  - Depression [Not Recovered/Not Resolved]
  - Tachycardia [Unknown]
  - Diarrhoea [Unknown]
  - Weight increased [Unknown]
  - Nervousness [Unknown]
